FAERS Safety Report 19509449 (Version 2)
Quarter: 2021Q3

REPORT INFORMATION
  Report Type: Report from Study
  Country: GB (occurrence: GB)
  Receive Date: 20210709
  Receipt Date: 20210712
  Transmission Date: 20211014
  Serious: Yes (Other)
  Sender: FDA-Public Use
  Company Number: GB-CELLTRION INC.-2021GB009107

PATIENT

DRUGS (4)
  1. IMRALDI [Suspect]
     Active Substance: ADALIMUMAB
     Indication: CROHN^S DISEASE
     Dosage: 40 MG EVERY 2 WEEKS
     Route: 058
  2. INFLIXIMAB (UNKNOWN) [Suspect]
     Active Substance: INFLIXIMAB
     Indication: PRODUCT USED FOR UNKNOWN INDICATION
     Dosage: UNKNOWN
     Route: 065
  3. IMRALDI [Suspect]
     Active Substance: ADALIMUMAB
     Dosage: WEEK 0, 80MG
     Route: 058
  4. IMRALDI [Suspect]
     Active Substance: ADALIMUMAB
     Dosage: WEEK 2, 40MG
     Route: 058

REACTIONS (13)
  - Pollakiuria [Unknown]
  - Mobility decreased [Unknown]
  - Anaphylactic reaction [Unknown]
  - Pain [Unknown]
  - Crohn^s disease [Unknown]
  - Dyslexia [Unknown]
  - Sleep disorder [Unknown]
  - Dizziness [Unknown]
  - Intestinal perforation [Unknown]
  - Liver function test increased [Unknown]
  - Mood swings [Unknown]
  - Increased appetite [Unknown]
  - Facial pain [Unknown]
